FAERS Safety Report 17482498 (Version 1)
Quarter: 2020Q1

REPORT INFORMATION
  Report Type: Spontaneous
  Country: DE (occurrence: DE)
  Receive Date: 20200302
  Receipt Date: 20200302
  Transmission Date: 20200409
  Serious: Yes (Death, Hospitalization, Other)
  Sender: FDA-Public Use
  Company Number: DE-PFIZER INC-2020085766

PATIENT
  Age: 87 Year
  Sex: Female

DRUGS (6)
  1. TORASEMID [Suspect]
     Active Substance: TORSEMIDE
     Dosage: 5 MG, 1-0-0-0
  2. CARBIMAZOL [Concomitant]
     Active Substance: CARBIMAZOLE
     Dosage: 10 MG, 0.5-0-0-0
  3. IBUPROFEN. [Suspect]
     Active Substance: IBUPROFEN
     Dosage: 200 MG, 1X/DAY
  4. BISOPROLOL [Suspect]
     Active Substance: BISOPROLOL
     Dosage: 1.25 MG, 1X/DAY (2.5 MG, 0.5-0-0-0)
  5. ACETYLSALICYLIC ACID [Concomitant]
     Active Substance: ASPIRIN
     Dosage: 100 MG, 1-0-0-0
  6. ETORICOX [Suspect]
     Active Substance: ETORICOXIB
     Dosage: 60 MG, AS NEEDED

REACTIONS (6)
  - Abdominal distension [Unknown]
  - Vomiting [Unknown]
  - Syncope [Unknown]
  - Oedema peripheral [Unknown]
  - Cardiac failure [Unknown]
  - Death [Fatal]

NARRATIVE: CASE EVENT DATE: 20191115
